FAERS Safety Report 17529925 (Version 1)
Quarter: 2020Q1

REPORT INFORMATION
  Report Type: Spontaneous
  Country: US (occurrence: US)
  Receive Date: 20200311
  Receipt Date: 20200311
  Transmission Date: 20200409
  Serious: Yes (Death, Other)
  Sender: FDA-Public Use
  Company Number: US-PURDUE-USA-2020-0150397

PATIENT
  Age: 70 Year

DRUGS (1)
  1. HYDROCODONE BITARTRATE AND ACETAMINOPHEN [Suspect]
     Active Substance: ACETAMINOPHEN\HYDROCODONE BITARTRATE
     Indication: PAIN
     Dosage: 5/325 MG, ONE TO TWO TABLETS, Q3- 4H PRN
     Route: 048

REACTIONS (3)
  - Accidental overdose [Fatal]
  - Cardio-respiratory arrest [Unknown]
  - Respiratory failure [Unknown]
